FAERS Safety Report 12981935 (Version 1)
Quarter: 2016Q4

REPORT INFORMATION
  Report Type: Spontaneous
  Country: US (occurrence: US)
  Receive Date: 20161128
  Receipt Date: 20161128
  Transmission Date: 20170207
  Serious: Yes (Hospitalization, Other)
  Sender: FDA-Public Use
  Company Number: None

PATIENT
  Age: 69 Year
  Sex: Male

DRUGS (1)
  1. REVLIMID [Suspect]
     Active Substance: LENALIDOMIDE
     Indication: MANTLE CELL LYMPHOMA
     Dosage: DAILY X21D/28D
     Route: 048
     Dates: start: 201311, end: 201403

REACTIONS (2)
  - Aphasia [None]
  - Transient ischaemic attack [None]

NARRATIVE: CASE EVENT DATE: 20140405
